FAERS Safety Report 6805196-X (Version None)
Quarter: 2010Q2

REPORT INFORMATION
  Report Type: 
  Country: None (occurrence: None)
  Receive Date: 20100628
  Receipt Date: 20070918
  Transmission Date: 20101027
  Serious: No
  Sender: FDA-Public Use
  Company Number: US-PFIZER INC-2007078125

PATIENT
  Age: 53 Year
  Sex: Female
  Weight: 158.76 kg

DRUGS (1)
  1. XALATAN [Suspect]
     Indication: GLAUCOMA
     Route: 031
     Dates: start: 20030101

REACTIONS (2)
  - EYE DISORDER [None]
  - EYELASH DISCOLOURATION [None]
